FAERS Safety Report 23738649 (Version 1)
Quarter: 2024Q2

REPORT INFORMATION
  Report Type: Spontaneous
  Country: TR (occurrence: TR)
  Receive Date: 20240412
  Receipt Date: 20240412
  Transmission Date: 20240715
  Serious: Yes (Other)
  Sender: FDA-Public Use
  Company Number: TR-STRIDES ARCOLAB LIMITED-2024SP004079

PATIENT
  Age: 61 Year
  Sex: Female

DRUGS (2)
  1. PRAMIPEXOLE DIHYDROCHLORIDE [Suspect]
     Active Substance: PRAMIPEXOLE DIHYDROCHLORIDE
     Indication: Restless legs syndrome
     Dosage: 1 MILLIGRAM, SINGLE (ONE DOSE)
     Route: 065
  2. GABAPENTIN [Suspect]
     Active Substance: GABAPENTIN
     Indication: Restless legs syndrome
     Dosage: 600 MILLIGRAM, SINGLE (ONE DOSE)
     Route: 065

REACTIONS (3)
  - Drug ineffective [Unknown]
  - Restless leg augmentation syndrome [Unknown]
  - Off label use [Unknown]
